FAERS Safety Report 8795190 (Version 3)
Quarter: 2015Q1

REPORT INFORMATION
  Report Type: Report from Study
  Country: US (occurrence: US)
  Receive Date: 20120918
  Receipt Date: 20150330
  Transmission Date: 20150721
  Serious: Yes (Death)
  Sender: FDA-Public Use
  Company Number: US-ROCHE-1125022

PATIENT
  Sex: Female
  Weight: 53.2 kg

DRUGS (25)
  1. AVASTIN [Suspect]
     Active Substance: BEVACIZUMAB
     Route: 042
  2. PEPCID [Concomitant]
     Active Substance: FAMOTIDINE
     Route: 042
  3. OXYCODON [Concomitant]
     Active Substance: OXYCODONE
  4. BENADRYL [Concomitant]
     Active Substance: DIPHENHYDRAMINE HYDROCHLORIDE
     Route: 042
  5. BENADRYL [Concomitant]
     Active Substance: DIPHENHYDRAMINE HYDROCHLORIDE
     Route: 042
  6. LOTENSIN (UNITED STATES) [Concomitant]
     Route: 065
  7. TYLENOL [Concomitant]
     Active Substance: ACETAMINOPHEN
     Route: 048
  8. ADVAIR HFA [Concomitant]
     Active Substance: FLUTICASONE PROPIONATE\SALMETEROL XINAFOATE
  9. LEXAPRO [Concomitant]
     Active Substance: ESCITALOPRAM OXALATE
  10. XELODA [Suspect]
     Active Substance: CAPECITABINE
     Indication: BREAST CANCER FEMALE
     Route: 048
     Dates: start: 20070208, end: 200705
  11. AMBIEN [Concomitant]
     Active Substance: ZOLPIDEM TARTRATE
  12. ZYRTEC [Concomitant]
     Active Substance: CETIRIZINE HYDROCHLORIDE
     Route: 065
  13. NEUPOGEN [Concomitant]
     Active Substance: FILGRASTIM
     Route: 065
  14. AVASTIN [Suspect]
     Active Substance: BEVACIZUMAB
     Route: 042
  15. ALBUTEROL. [Concomitant]
     Active Substance: ALBUTEROL
  16. LORAZEPAM. [Concomitant]
     Active Substance: LORAZEPAM
  17. AVASTIN [Suspect]
     Active Substance: BEVACIZUMAB
     Indication: BREAST CANCER FEMALE
     Route: 042
     Dates: start: 20070208, end: 200705
  18. AVASTIN [Suspect]
     Active Substance: BEVACIZUMAB
     Route: 042
  19. ARANESP [Concomitant]
     Active Substance: DARBEPOETIN ALFA
     Route: 058
  20. MEGACE [Concomitant]
     Active Substance: MEGESTROL ACETATE
  21. NAVELBINE [Concomitant]
     Active Substance: VINORELBINE TARTRATE
  22. SYNTHROID [Concomitant]
     Active Substance: LEVOTHYROXINE SODIUM
     Route: 065
  23. DECADRON [Concomitant]
     Active Substance: DEXAMETHASONE
     Route: 042
  24. ZOMETA [Concomitant]
     Active Substance: ZOLEDRONIC ACID
     Indication: BONE DISORDER
     Route: 042
  25. ATIVAN [Concomitant]
     Active Substance: LORAZEPAM

REACTIONS (20)
  - Abdominal distension [Recovering/Resolving]
  - Skin exfoliation [Unknown]
  - Skin irritation [Recovering/Resolving]
  - Hepatic neoplasm [Recovering/Resolving]
  - Erythema [Unknown]
  - Retroperitoneal lymphadenopathy [Unknown]
  - Discomfort [Unknown]
  - Oral pain [Recovering/Resolving]
  - Vomiting [Unknown]
  - Fatigue [Unknown]
  - Deafness [Unknown]
  - Hypoaesthesia [Unknown]
  - Tongue disorder [Unknown]
  - Flatulence [Unknown]
  - Neuropathy peripheral [Unknown]
  - Disease progression [Fatal]
  - Palmar-plantar erythrodysaesthesia syndrome [Recovering/Resolving]
  - Nausea [Recovering/Resolving]
  - Back pain [Unknown]
  - Dyspnoea [Unknown]
